FAERS Safety Report 6945890-3 (Version None)
Quarter: 2010Q3

REPORT INFORMATION
  Report Type: 
  Country: None (occurrence: None)
  Receive Date: 20100827
  Receipt Date: 20100825
  Transmission Date: 20110219
  Serious: No
  Sender: FDA-Public Use
  Company Number: US-B.I. PHARMACEUTICALS,INC./RIDGEFIELD-2010-BP-09703BP

PATIENT
  Sex: Female

DRUGS (1)
  1. COMBIVENT [Suspect]

REACTIONS (1)
  - DRUG INEFFECTIVE [None]
